FAERS Safety Report 15324874 (Version 2)
Quarter: 2018Q4

REPORT INFORMATION
  Report Type: Report from Study
  Country: US (occurrence: US)
  Receive Date: 20180828
  Receipt Date: 20180903
  Transmission Date: 20190204
  Serious: Yes (Other)
  Sender: FDA-Public Use
  Company Number: US-BRISTOL-MYERS SQUIBB COMPANY-BMS-2018-078570

PATIENT
  Age: 47 Year
  Sex: Male

DRUGS (2)
  1. NIVOLUMAB [Suspect]
     Active Substance: NIVOLUMAB
     Indication: CHOLANGIOCARCINOMA
     Route: 065
  2. TAK 659 [Suspect]
     Active Substance: MIVAVOTINIB CITRATE
     Indication: CHOLANGIOCARCINOMA
     Route: 065

REACTIONS (4)
  - Cardiomyopathy [Unknown]
  - Pneumonitis [Unknown]
  - Drug-induced liver injury [Unknown]
  - Product use in unapproved indication [Unknown]
